FAERS Safety Report 26196148 (Version 1)
Quarter: 2025Q4

REPORT INFORMATION
  Report Type: Spontaneous
  Country: US (occurrence: US)
  Receive Date: 20251224
  Receipt Date: 20251224
  Transmission Date: 20260118
  Serious: Yes (Life-Threatening, Hospitalization, Other)
  Sender: MACLEODS
  Company Number: US-MLMSERVICE-20251208-PI744257-00033-1

PATIENT

DRUGS (11)
  1. CLOPIDOGREL [Suspect]
     Active Substance: CLOPIDOGREL BISULFATE
     Indication: Acute myocardial infarction
     Route: 065
  2. CLOPIDOGREL [Suspect]
     Active Substance: CLOPIDOGREL BISULFATE
     Route: 065
  3. OLANZAPINE [Suspect]
     Active Substance: OLANZAPINE
     Indication: Delirium
     Dosage: INTRAMUSCULAR OLANZAPINE 5 MG AT 0134 HOURS (LEFT THIGH) AND 0552 HOURS (LEFT THIGH)
     Route: 030
  4. OLANZAPINE [Suspect]
     Active Substance: OLANZAPINE
     Indication: Agitation
     Dosage: INTRAMUSCULAR OLANZAPINE 5 MG AT 0134 HOURS (LEFT THIGH) AND 0552 HOURS (LEFT THIGH)
     Route: 030
  5. ZIPRASIDONE [Suspect]
     Active Substance: ZIPRASIDONE
     Indication: Delirium
     Dosage: INTRAMUSCULAR ZIPRASIDONE 10 MG AT 0617HOURS (RIGHT THIGH) AND 2307 HOURS (RIGHT DELTOID).
     Route: 030
  6. ZIPRASIDONE [Suspect]
     Active Substance: ZIPRASIDONE
     Indication: Agitation
     Dosage: INTRAMUSCULAR ZIPRASIDONE 10 MG AT 0617HOURS (RIGHT THIGH) AND 2307 HOURS (RIGHT DELTOID).
     Route: 030
  7. ASPIRIN [Suspect]
     Active Substance: ASPIRIN
     Indication: Acute myocardial infarction
     Route: 065
  8. ASPIRIN [Suspect]
     Active Substance: ASPIRIN
     Route: 065
  9. HEPARIN [Suspect]
     Active Substance: HEPARIN SODIUM
     Indication: Acute myocardial infarction
     Dosage: INFUSION AT 12 UNITS/KG/H
     Route: 030
  10. HEPARIN [Suspect]
     Active Substance: HEPARIN SODIUM
     Dosage: 60 IU/KG
     Route: 030
  11. DEXMEDETOMIDINE [Concomitant]
     Active Substance: DEXMEDETOMIDINE
     Indication: Agitation
     Route: 060

REACTIONS (2)
  - Haematoma muscle [Recovering/Resolving]
  - Electrocardiogram QT prolonged [Unknown]
